FAERS Safety Report 7465736-7 (Version None)
Quarter: 2011Q2

REPORT INFORMATION
  Report Type: 
  Country: None (occurrence: None)
  Receive Date: 20110509
  Receipt Date: 20110502
  Transmission Date: 20111010
  Serious: Yes (Hospitalization)
  Sender: FDA-Public Use
  Company Number: FR-SANOFI-AVENTIS-2011SA027816

PATIENT
  Age: 86 Year
  Sex: Male

DRUGS (7)
  1. CORDARONE [Concomitant]
     Indication: ATRIAL FIBRILLATION
     Route: 048
     Dates: end: 20101201
  2. HEMIGOXINE NATIVELLE [Concomitant]
     Indication: CARDIOMYOPATHY
     Route: 048
  3. MULTAQ [Suspect]
     Indication: ATRIAL FIBRILLATION
     Route: 048
     Dates: start: 20101201, end: 20110301
  4. CORTICOSTEROIDS [Concomitant]
     Indication: INTERSTITIAL LUNG DISEASE
     Route: 065
     Dates: start: 20101201, end: 20110201
  5. SERENOA REPENS [Concomitant]
     Route: 048
  6. PLAVIX [Concomitant]
     Route: 048
  7. ALLOPURINOL [Concomitant]
     Route: 048

REACTIONS (1)
  - LUNG INFECTION [None]
